FAERS Safety Report 5935244-0 (Version None)
Quarter: 2008Q4

REPORT INFORMATION
  Report Type: 
  Country: None (occurrence: None)
  Receive Date: 20081028
  Receipt Date: 20081021
  Transmission Date: 20090506
  Serious: Yes (Death)
  Sender: FDA-Public Use
  Company Number: 2008JP004732

PATIENT
  Age: 75 Year
  Sex: Female
  Weight: 45 kg

DRUGS (6)
  1. PROGRAF [Suspect]
     Indication: RHEUMATOID ARTHRITIS
     Dosage: 1 MG, /D, ORAL, 1.5 MG, /D, ORAL
     Route: 048
     Dates: start: 20080126, end: 20080222
  2. PROGRAF [Suspect]
     Indication: RHEUMATOID ARTHRITIS
     Dosage: 1 MG, /D, ORAL, 1.5 MG, /D, ORAL
     Route: 048
     Dates: start: 20080223
  3. RHEUMATREX [Suspect]
     Indication: RHEUMATOID ARTHRITIS
     Dosage: 60 MG, WEEKLY, ORAL
     Route: 048
     Dates: start: 19960606
  4. PREDONINE (PREDNISOLONE) [Concomitant]
  5. FOSAMAC (ALENDRONATE SODIUM) [Concomitant]
  6. FLUCAM (AMPIROXICAM) [Concomitant]

REACTIONS (4)
  - BLOOD UREA DECREASED [None]
  - BONE MARROW FAILURE [None]
  - CHOKING SENSATION [None]
  - PNEUMOCYSTIS JIROVECI PNEUMONIA [None]
